FAERS Safety Report 5740209-8 (Version None)
Quarter: 2008Q2

REPORT INFORMATION
  Report Type: 
  Country: None (occurrence: None)
  Receive Date: 20080516
  Receipt Date: 20080507
  Transmission Date: 20081010
  Serious: Yes (Other)
  Sender: FDA-Public Use
  Company Number: CA-JNJFOC-20080107640

PATIENT
  Age: 50 Year
  Sex: Female

DRUGS (13)
  1. REMICADE [Suspect]
     Dosage: 8 INFUSIONS, DATES UNSPECIFIED
     Route: 042
  2. REMICADE [Suspect]
     Dosage: 10TH INFUSION
     Route: 042
  3. REMICADE [Suspect]
     Indication: ANKYLOSING SPONDYLITIS
     Dosage: 9 INFUSIONS ON UNSPECIFIED DATE.
     Route: 042
  4. BENADRYL [Concomitant]
     Indication: PREMEDICATION
     Route: 042
  5. PREDNISONE TAB [Concomitant]
     Indication: PREMEDICATION
  6. PERCOCET [Concomitant]
  7. ATASOL [Concomitant]
  8. LECTOPAM TAB [Concomitant]
  9. SEROQUEL [Concomitant]
  10. NITROGLYCERIN [Concomitant]
  11. NAPROXEN [Concomitant]
  12. PREVACID [Concomitant]
  13. GRAVOL TAB [Concomitant]

REACTIONS (9)
  - DRY THROAT [None]
  - DYSPHONIA [None]
  - HEART RATE INCREASED [None]
  - HYPOAESTHESIA ORAL [None]
  - INFUSION RELATED REACTION [None]
  - OXYGEN SATURATION DECREASED [None]
  - PARAESTHESIA [None]
  - RASH [None]
  - THROAT TIGHTNESS [None]
